FAERS Safety Report 9303151 (Version 1)
Quarter: 2013Q2

REPORT INFORMATION
  Report Type: Spontaneous
  Country: US (occurrence: None)
  Receive Date: 20130521
  Receipt Date: 20130521
  Transmission Date: 20140414
  Serious: No
  Sender: FDA-Public Use
  Company Number: None

PATIENT
  Age: 18 Year
  Sex: Female

DRUGS (1)
  1. IMPLANON [Suspect]

REACTIONS (6)
  - Menorrhagia [None]
  - Pelvic pain [None]
  - Abdominal pain [None]
  - Ovarian cyst [None]
  - Breast mass [None]
  - Hepatitis C [None]
